FAERS Safety Report 4286210-5 (Version None)
Quarter: 2004Q1

REPORT INFORMATION
  Report Type: 
  Country: None (occurrence: None)
  Receive Date: 20040202
  Receipt Date: 20040121
  Transmission Date: 20041129
  Serious: Yes (Death, Other)
  Sender: FDA-Public Use
  Company Number: US-JNJFOC-20031104027

PATIENT
  Age: 53 Year
  Sex: Male

DRUGS (9)
  1. DURAGESIC [Suspect]
     Indication: PAIN
     Dosage: 100 UG/HR, 1 IN 48 HOUR, TRANSDERMAL
     Route: 062
     Dates: start: 20020101
  2. TERAZOSIN (TERAZOSIN) [Concomitant]
  3. PRILOSEC [Concomitant]
  4. DIOVAN [Concomitant]
  5. TOPRIL XL (METOPROLOL SUCCINATE) [Concomitant]
  6. ELAVIL [Concomitant]
  7. NEURONTIN [Concomitant]
  8. REMERON [Concomitant]
  9. CARBATROL [Concomitant]

REACTIONS (5)
  - APPLICATION SITE IRRITATION [None]
  - BALANCE DISORDER [None]
  - MEDICATION ERROR [None]
  - SUICIDE ATTEMPT [None]
  - TREMOR [None]
